FAERS Safety Report 5498877-4 (Version None)
Quarter: 2007Q4

REPORT INFORMATION
  Report Type: 
  Country: None (occurrence: None)
  Receive Date: 20071026
  Receipt Date: 20070731
  Transmission Date: 20080405
  Serious: No
  Sender: FDA-Public Use
  Company Number: A0667354A

PATIENT
  Sex: Male

DRUGS (4)
  1. ADVAIR DISKUS 100/50 [Suspect]
     Indication: ASTHMA
     Dosage: 2PUFF TWICE PER DAY
     Route: 055
     Dates: start: 20060101, end: 20070101
  2. LIPITOR [Concomitant]
  3. FOSAMAX [Concomitant]
  4. LEVOXYL [Concomitant]

REACTIONS (3)
  - ABNORMAL SENSATION IN EYE [None]
  - HEART RATE INCREASED [None]
  - OSTEOPOROSIS [None]
